FAERS Safety Report 5024333-3 (Version None)
Quarter: 2006Q2

REPORT INFORMATION
  Report Type: 
  Country: None (occurrence: None)
  Receive Date: 20060608
  Receipt Date: 20060608
  Transmission Date: 20061013
  Serious: Yes (Life-Threatening)
  Sender: FDA-Public Use
  Company Number: None

PATIENT
  Age: 50 Year
  Sex: Female
  Weight: 107.9561 kg

DRUGS (1)
  1. VENOFER [Suspect]
     Indication: ANAEMIA
     Dosage: 500 MG MONTHLY IV
     Route: 042
     Dates: start: 20060605, end: 20060606

REACTIONS (3)
  - BACK PAIN [None]
  - DYSPNOEA [None]
  - RASH [None]
